FAERS Safety Report 6760409-8 (Version None)
Quarter: 2010Q2

REPORT INFORMATION
  Report Type: 
  Country: None (occurrence: None)
  Receive Date: 20100604
  Receipt Date: 20100524
  Transmission Date: 20101027
  Serious: Yes (Other)
  Sender: FDA-Public Use
  Company Number: 2010AP001073

PATIENT
  Age: 72 Year
  Sex: Female

DRUGS (2)
  1. OMEPRAZOLE [Suspect]
     Indication: PEPTIC ULCER
  2. FUROSEMIDE [Concomitant]

REACTIONS (2)
  - BLOOD CALCIUM DECREASED [None]
  - HYPOMAGNESAEMIA [None]
